FAERS Safety Report 18615267 (Version 1)
Quarter: 2020Q4

REPORT INFORMATION
  Report Type: Spontaneous
  Country: US (occurrence: US)
  Receive Date: 20201214
  Receipt Date: 20201214
  Transmission Date: 20210114
  Serious: No
  Sender: FDA-Public Use
  Company Number: US-EMD SERONO-9142268

PATIENT
  Age: 28 Year
  Sex: Female

DRUGS (1)
  1. REBIF [Suspect]
     Active Substance: INTERFERON BETA-1A
     Indication: MULTIPLE SCLEROSIS
     Dosage: PREFILLED SYRINGE
     Route: 058
     Dates: start: 20191224, end: 2020

REACTIONS (3)
  - Depression [Unknown]
  - Influenza like illness [Unknown]
  - Drug intolerance [Unknown]

NARRATIVE: CASE EVENT DATE: 20200115
